FAERS Safety Report 21118742 (Version 1)
Quarter: 2022Q3

REPORT INFORMATION
  Report Type: Spontaneous
  Country: US (occurrence: None)
  Receive Date: 20220721
  Receipt Date: 20220721
  Transmission Date: 20221026
  Serious: No
  Sender: FDA-Public Use
  Company Number: None

PATIENT
  Age: 45 Year
  Sex: Female

DRUGS (1)
  1. ORENCIA [Suspect]
     Active Substance: ABATACEPT
     Indication: Rheumatoid arthritis
     Dosage: OTHER FREQUENCY : UNKNOWN;?
     Route: 058
     Dates: start: 20220711, end: 20220711

REACTIONS (3)
  - Arthralgia [None]
  - Joint stiffness [None]
  - Monoplegia [None]

NARRATIVE: CASE EVENT DATE: 20220711
